FAERS Safety Report 9580536 (Version 1)
Quarter: 2013Q4

REPORT INFORMATION
  Report Type: Spontaneous
  Country: US (occurrence: None)
  Receive Date: 20131001
  Receipt Date: 20131001
  Transmission Date: 20140711
  Serious: Yes (Hospitalization)
  Sender: FDA-Public Use
  Company Number: None

PATIENT
  Age: 49 Year
  Sex: Male
  Weight: 113 kg

DRUGS (3)
  1. METHOTREXATE [Suspect]
  2. RITUXIMAB [Suspect]
  3. TEMZOLOMIDE 315 MG ABBOTT [Suspect]

REACTIONS (7)
  - Thrombocytopenia [None]
  - Neutropenia [None]
  - Mental status changes [None]
  - Confusional state [None]
  - Sepsis [None]
  - Acute respiratory distress syndrome [None]
  - Supraventricular tachycardia [None]
